FAERS Safety Report 7105780-2 (Version None)
Quarter: 2010Q4

REPORT INFORMATION
  Report Type: 
  Country: None (occurrence: None)
  Receive Date: 20101116
  Receipt Date: 20101102
  Transmission Date: 20110411
  Serious: Yes (Hospitalization)
  Sender: FDA-Public Use
  Company Number: PHHY2010JP75071

PATIENT
  Sex: Female

DRUGS (3)
  1. AFINITOR [Suspect]
     Indication: METASTATIC RENAL CELL CARCINOMA
     Dosage: 10 MG/DAY
     Route: 048
     Dates: start: 20100826, end: 20100911
  2. SUNITINIB MALATE [Concomitant]
     Indication: METASTATIC RENAL CELL CARCINOMA
     Dosage: 50MG
     Route: 048
     Dates: start: 20100423, end: 20100825
  3. SORAFENIB TOSILATE [Concomitant]
     Indication: METASTATIC RENAL CELL CARCINOMA
     Dosage: 800MG
     Route: 048
     Dates: start: 20100918, end: 20100422

REACTIONS (1)
  - MALIGNANT NEOPLASM PROGRESSION [None]
